FAERS Safety Report 12310468 (Version 2)
Quarter: 2016Q2

REPORT INFORMATION
  Report Type: Spontaneous
  Country: HU (occurrence: HU)
  Receive Date: 20160427
  Receipt Date: 20160511
  Transmission Date: 20160815
  Serious: Yes (Other)
  Sender: FDA-Public Use
  Company Number: HU-SA-2016SA080816

PATIENT

DRUGS (1)
  1. AUBAGIO [Suspect]
     Active Substance: TERIFLUNOMIDE
     Route: 048
     Dates: end: 2015

REACTIONS (3)
  - Colitis ulcerative [Recovered/Resolved]
  - Neuropathy peripheral [Unknown]
  - Diarrhoea [Recovered/Resolved]
